FAERS Safety Report 16774930 (Version 2)
Quarter: 2024Q2

REPORT INFORMATION
  Report Type: Other
  Country: PH (occurrence: None)
  Receive Date: 20190905
  Receipt Date: 20240528
  Transmission Date: 20240715
  Serious: Yes (Hospitalization)
  Sender: FDA-Public Use
  Company Number: PH-ROCHE-2397085

PATIENT
  Age: 41 Year
  Sex: Male

DRUGS (2)
  1. MABTHERA [Suspect]
     Active Substance: RITUXIMAB
     Indication: Product used for unknown indication
     Route: 041
     Dates: start: 20190626
  2. MABTHERA [Suspect]
     Active Substance: RITUXIMAB
     Route: 041
     Dates: start: 20190601

REACTIONS (2)
  - Haematological infection [Unknown]
  - Immunodeficiency [Unknown]
